FAERS Safety Report 24109792 (Version 1)
Quarter: 2024Q3

REPORT INFORMATION
  Report Type: Spontaneous
  Country: US (occurrence: US)
  Receive Date: 20240718
  Receipt Date: 20240718
  Transmission Date: 20241016
  Serious: Yes (Hospitalization, Other)
  Sender: GRANULES INDIA
  Company Number: US-GRANULES-US-2024GRALIT00269

PATIENT
  Age: 43 Year
  Sex: Female

DRUGS (1)
  1. METFORMIN HYDROCHLORIDE [Suspect]
     Active Substance: METFORMIN HYDROCHLORIDE
     Indication: Product used for unknown indication
     Dosage: 360 TABLETS EACH CONTAINING 1 GRAM
     Route: 048

REACTIONS (4)
  - Metabolic acidosis [Unknown]
  - Renal impairment [Unknown]
  - Hypoglycaemia [Unknown]
  - Overdose [Unknown]
